FAERS Safety Report 9895725 (Version 1)
Quarter: 2014Q1

REPORT INFORMATION
  Report Type: Spontaneous
  Country: US (occurrence: US)
  Receive Date: 20140213
  Receipt Date: 20140213
  Transmission Date: 20141002
  Serious: No
  Sender: FDA-Public Use
  Company Number: US-BRISTOL-MYERS SQUIBB COMPANY-18978114

PATIENT
  Age: 62 Year
  Sex: Female
  Weight: 59.41 kg

DRUGS (4)
  1. ABATACEPT SUBQ INJECTION 125MG/ML [Suspect]
     Dosage: 1 DF: 125MG/1ML.?4 PACKS
     Route: 058
  2. METHOTREXATE [Concomitant]
     Dosage: TAB
  3. FOLIC ACID [Concomitant]
     Dosage: TAB
  4. TYLENOL #3 [Concomitant]
     Dosage: TAB

REACTIONS (1)
  - Stomatitis [Unknown]
